FAERS Safety Report 10977811 (Version 1)
Quarter: 2015Q1

REPORT INFORMATION
  Report Type: Spontaneous
  Country: US (occurrence: None)
  Receive Date: 20150226
  Receipt Date: 20150226
  Transmission Date: 20150721
  Serious: No
  Sender: FDA-Public Use
  Company Number: TPA2009A01742

PATIENT
  Age: 64 Year
  Sex: Female
  Weight: 124.29 kg

DRUGS (7)
  1. ULORIC [Suspect]
     Active Substance: FEBUXOSTAT
     Indication: GOUTY ARTHRITIS
     Route: 048
     Dates: start: 20090505, end: 200906
  2. BACTRIM [Concomitant]
     Active Substance: SULFAMETHOXAZOLE\TRIMETHOPRIM
  3. AUGMENTIN (AMOXICILLIN, CLAVULANATE POTASSIUM) [Concomitant]
  4. ZAROXOLYN (METOLAZONE) [Concomitant]
  5. PROCRIT (ERYTHROPIETIN) [Concomitant]
  6. NAPROSYN (NAPROXEN) [Concomitant]
  7. COLCHICINE. [Concomitant]
     Active Substance: COLCHICINE

REACTIONS (2)
  - Skin exfoliation [None]
  - Neuropathy peripheral [None]

NARRATIVE: CASE EVENT DATE: 200905
